FAERS Safety Report 4271379-9 (Version None)
Quarter: 2004Q1

REPORT INFORMATION
  Report Type: 
  Country: None (occurrence: None)
  Receive Date: 20040113
  Receipt Date: 20021115
  Transmission Date: 20041129
  Serious: Yes (Hospitalization)
  Sender: FDA-Public Use
  Company Number: KII-2002-0006781

PATIENT
  Age: 15 Year
  Sex: Female

DRUGS (3)
  1. MS CONTIN [Suspect]
     Indication: DRUG USE FOR UNKNOWN INDICATION
  2. BENADRYL [Suspect]
     Indication: DRUG USE FOR UNKNOWN INDICATION
  3. ACETYLSALICYLIC ACID SRT [Suspect]
     Indication: DRUG USE FOR UNKNOWN INDICATION

REACTIONS (5)
  - CONFUSIONAL STATE [None]
  - LETHARGY [None]
  - MEDICATION ERROR [None]
  - PRURITUS [None]
  - RESPIRATORY DEPRESSION [None]
